FAERS Safety Report 9008297 (Version 1)
Quarter: 2013Q1

REPORT INFORMATION
  Report Type: Spontaneous
  Country: NL (occurrence: NL)
  Receive Date: 20130111
  Receipt Date: 20130111
  Transmission Date: 20140127
  Serious: Yes (Other)
  Sender: FDA-Public Use
  Company Number: PHHY2013NL002343

PATIENT
  Sex: Male

DRUGS (3)
  1. ZOMETA [Suspect]
     Indication: PROSTATE CANCER METASTATIC
     Dosage: 4 MG/ 100 ML, 1 PER 28 DAYS
     Route: 042
     Dates: start: 20111223
  2. ZOMETA [Suspect]
     Dosage: 4 MG/ 100 ML, 1 PER 28 DAYS
     Route: 042
     Dates: start: 20121121
  3. ZOMETA [Suspect]
     Dosage: 4 MG/ 100 ML, 1 PER 28 DAYS
     Route: 042
     Dates: start: 20121217

REACTIONS (1)
  - Terminal state [Unknown]
